FAERS Safety Report 8891439 (Version 3)
Quarter: 2013Q1

REPORT INFORMATION
  Report Type: Spontaneous
  Country: US (occurrence: None)
  Receive Date: 20121031
  Receipt Date: 20121226
  Transmission Date: 20140127
  Serious: Yes (Hospitalization, Other)
  Sender: FDA-Public Use
  Company Number: US-1194795

PATIENT
  Age: 71 Year
  Sex: Male
  Weight: 113.4 kg

DRUGS (3)
  1. AZOPT 1% [Suspect]
     Indication: INTRAOCULAR PRESSURE INCREASED
     Dosage: (1 GTT BID OU OPHTHALMIC)
     Route: 047
     Dates: start: 201202
  2. ACIPHEX [Concomitant]
  3. BENICAR [Concomitant]

REACTIONS (11)
  - Inflammation [None]
  - Joint swelling [None]
  - Joint swelling [None]
  - Local swelling [None]
  - Local swelling [None]
  - Gait disturbance [None]
  - Pain [None]
  - Arthralgia [None]
  - Arthralgia [None]
  - Adverse event [None]
  - Mental disorder [None]
